FAERS Safety Report 19747334 (Version 4)
Quarter: 2021Q4

REPORT INFORMATION
  Report Type: Spontaneous
  Country: US (occurrence: US)
  Receive Date: 20210826
  Receipt Date: 20211006
  Transmission Date: 20220303
  Serious: Yes (Death, Hospitalization, Other)
  Sender: FDA-Public Use
  Company Number: US-ALXN-A202109427

PATIENT
  Age: 64 Year
  Sex: Female
  Weight: 101.1 kg

DRUGS (3)
  1. ANDEXXA [Suspect]
     Active Substance: ANDEXANET ALFA
     Indication: Procoagulant therapy
     Dosage: 400 MG, UNK
     Route: 040
     Dates: start: 20210811
  2. ANDEXXA [Suspect]
     Active Substance: ANDEXANET ALFA
     Dosage: 480 MG, UNK
     Route: 040
  3. NICARDIPINE [Concomitant]
     Active Substance: NICARDIPINE
     Indication: Hypertension
     Dosage: 15 MG/HOUR
     Route: 041
     Dates: start: 20210811, end: 20210812

REACTIONS (4)
  - Cardiac arrest [Fatal]
  - Thalamus haemorrhage [Fatal]
  - Haemorrhagic stroke [Fatal]
  - Apnoea [Fatal]

NARRATIVE: CASE EVENT DATE: 20210811
